FAERS Safety Report 7949602-6 (Version None)
Quarter: 2011Q4

REPORT INFORMATION
  Report Type: 
  Country: None (occurrence: None)
  Receive Date: 20111130
  Receipt Date: 20111124
  Transmission Date: 20120403
  Serious: Yes (Death, Hospitalization)
  Sender: FDA-Public Use
  Company Number: JP-ELI_LILLY_AND_COMPANY-JP201110004605

PATIENT
  Sex: Female
  Weight: 44.4 kg

DRUGS (6)
  1. NAPROXEN [Concomitant]
     Dosage: 300 MG, UNK
     Route: 048
     Dates: start: 20110927, end: 20111015
  2. VITAMIN B12                        /00056201/ [Concomitant]
     Dosage: 1000 UG, UNK
     Dates: start: 20110927
  3. LANSOPRAZOLE [Concomitant]
     Dosage: 15 MG, UNK
     Route: 048
     Dates: start: 20110930, end: 20111015
  4. ALIMTA [Suspect]
     Indication: LUNG ADENOCARCINOMA
     Dosage: 500 MG/M2, OTHER
     Route: 042
     Dates: start: 20111004
  5. FOLIC ACID [Concomitant]
     Dosage: 500 UNK, UNK
     Route: 048
     Dates: start: 20110927, end: 20111015
  6. CISPLATIN [Concomitant]
     Indication: LUNG ADENOCARCINOMA
     Dosage: 75 MG/M2, OTHER
     Route: 065
     Dates: start: 20111004

REACTIONS (4)
  - ATELECTASIS [None]
  - NEOPLASM PROGRESSION [None]
  - RENAL IMPAIRMENT [None]
  - HAEMOPTYSIS [None]
